FAERS Safety Report 7639607-7 (Version None)
Quarter: 2011Q3

REPORT INFORMATION
  Report Type: 
  Country: None (occurrence: None)
  Receive Date: 20110721
  Receipt Date: 20110705
  Transmission Date: 20111222
  Serious: Yes (Other)
  Sender: FDA-Public Use
  Company Number: METH20110007

PATIENT
  Age: 10 Year
  Sex: Female
  Weight: 36 kg

DRUGS (7)
  1. PREDNISONE [Suspect]
     Indication: POLYCHONDRITIS
     Dosage: 1 MG/KG, 1 IN 1 D, ORAL
     Route: 048
  2. ETANERCEPT (ETANERCEPT) (25 MILLIGRAM) [Suspect]
     Indication: POLYCHONDRITIS
     Dosage: 3.5714 MG, 1 IN 1 WK, SUBCUTANEOUS
     Route: 058
  3. IMMUNE GLOBULIN (HUMAN) [Suspect]
     Indication: POLYCHONDRITIS
     Dosage: 2 G/KG, INTRAVENOUS
     Route: 042
  4. INFLIXIMAB (INFLIXIMAB) [Suspect]
     Indication: POLYCHONDRITIS
  5. METHOTREXATE [Suspect]
     Indication: POLYCHONDRITIS
     Dosage: 0.0714 MG/KG, 1 IN 1 WK, SUBCUTANEOUS
     Route: 058
  6. METHYLPREDNISOLONE [Suspect]
     Indication: POLYCHONDRITIS
     Dosage: 0.3333 GM, 1 IN 3 D, INTRAVENOUS
     Route: 042
  7. ANAKINRA (ANAKINRA) (100 MILLIGRAM) [Suspect]
     Indication: POLYCHONDRITIS
     Dosage: 100 MG, 1 IN 1 D, SUBCUTANEOUS
     Route: 058

REACTIONS (5)
  - INJECTION SITE PAIN [None]
  - CUSHING'S SYNDROME [None]
  - WEIGHT INCREASED [None]
  - SWELLING [None]
  - BACK PAIN [None]
